FAERS Safety Report 17641301 (Version 1)
Quarter: 2020Q2

REPORT INFORMATION
  Report Type: Spontaneous
  Country: PL (occurrence: PL)
  Receive Date: 20200407
  Receipt Date: 20200407
  Transmission Date: 20200713
  Serious: Yes (Other)
  Sender: FDA-Public Use
  Company Number: PL-BAUSCH-BL-2020-008257

PATIENT
  Age: 28 Year
  Sex: Female

DRUGS (5)
  1. MESALAZINE [Suspect]
     Active Substance: MESALAMINE
     Dosage: DECREASED DOSES, ADDED AZATHIOPRINE
     Route: 065
     Dates: start: 2017
  2. AZATHIOPRINE. [Suspect]
     Active Substance: AZATHIOPRINE
     Indication: CROHN^S DISEASE
     Route: 065
  3. MESALAZINE [Suspect]
     Active Substance: MESALAMINE
     Route: 065
     Dates: end: 2018
  4. ADALIMUMAB [Suspect]
     Active Substance: ADALIMUMAB
     Indication: CROHN^S DISEASE
     Route: 065
     Dates: start: 201706, end: 201807
  5. MESALAZINE [Suspect]
     Active Substance: MESALAMINE
     Indication: CROHN^S DISEASE
     Route: 065

REACTIONS (2)
  - Interstitial lung disease [Recovered/Resolved]
  - Pneumocystis jirovecii infection [Recovered/Resolved]

NARRATIVE: CASE EVENT DATE: 201704
